FAERS Safety Report 10146088 (Version 2)
Quarter: 2014Q2

REPORT INFORMATION
  Report Type: Spontaneous
  Country: NL (occurrence: NL)
  Receive Date: 20140501
  Receipt Date: 20140620
  Transmission Date: 20141212
  Serious: Yes (Death, Life-Threatening, Hospitalization)
  Sender: FDA-Public Use
  Company Number: NL-ALEXION PHARMACEUTICALS INC.-A201401583

PATIENT
  Sex: 0

DRUGS (2)
  1. SOLIRIS 300MG [Suspect]
     Indication: PAROXYSMAL NOCTURNAL HAEMOGLOBINURIA
     Dosage: 600 MG,Q2W
     Route: 042
     Dates: start: 20121018
  2. SOLIRIS 300MG [Suspect]
     Dosage: 900 MG, UNK
     Route: 042
     Dates: end: 20140417

REACTIONS (7)
  - Death [Fatal]
  - Hip fracture [Unknown]
  - Klebsiella sepsis [Unknown]
  - Hypotension [Unknown]
  - Pyrexia [Unknown]
  - Fall [Unknown]
  - Drug ineffective [Unknown]
